FAERS Safety Report 5892057-6 (Version None)
Quarter: 2008Q3

REPORT INFORMATION
  Report Type: 
  Country: None (occurrence: None)
  Receive Date: 20080922
  Receipt Date: 20080825
  Transmission Date: 20090109
  Serious: No
  Sender: FDA-Public Use
  Company Number: US-B.I. PHARMACEUTICALS,INC./RIDGEFIELD-2008-BP-14482BP

PATIENT
  Sex: Female

DRUGS (3)
  1. MIRAPEX [Suspect]
     Indication: PERIODIC LIMB MOVEMENT DISORDER
     Dates: start: 20030301
  2. REQUIP [Concomitant]
  3. SINEMET [Concomitant]

REACTIONS (2)
  - PAIN [None]
  - PATHOLOGICAL GAMBLING [None]
